FAERS Safety Report 5042482-0 (Version None)
Quarter: 2006Q2

REPORT INFORMATION
  Report Type: 
  Country: None (occurrence: None)
  Receive Date: 20060627
  Receipt Date: 20060619
  Transmission Date: 20061013
  Serious: Yes (Hospitalization)
  Sender: FDA-Public Use
  Company Number: FRWYE745119JUN06

PATIENT
  Age: 77 Year
  Sex: Male

DRUGS (7)
  1. EFFEXOR XR [Suspect]
     Dosage: 112.5 MG TOTAL DAILY, ORAL
     Route: 048
     Dates: end: 20060130
  2. SOLUPRED (PREDNISOLONE SODIUM SULFOBENZOATE) [Concomitant]
  3. NEORAL [Concomitant]
  4. FOSINOPRIL SODIUM [Concomitant]
  5. CELLCEPT [Concomitant]
  6. LEXOMIL (BROMAZEPAM) [Concomitant]
  7. HYDROCHLOROTHIAZIDE [Concomitant]

REACTIONS (10)
  - ABDOMINAL INJURY [None]
  - ABDOMINAL PAIN UPPER [None]
  - ANAEMIA [None]
  - CIRCULATORY COLLAPSE [None]
  - FALL [None]
  - MALAISE [None]
  - MUSCLE HAEMORRHAGE [None]
  - ORTHOSTATIC HYPOTENSION [None]
  - PLATELET COUNT DECREASED [None]
  - PULMONARY EMBOLISM [None]
